FAERS Safety Report 5515907-1 (Version None)
Quarter: 2007Q4

REPORT INFORMATION
  Report Type: 
  Country: None (occurrence: None)
  Receive Date: 20071109
  Receipt Date: 20071106
  Transmission Date: 20080405
  Serious: Yes (Death)
  Sender: FDA-Public Use
  Company Number: CERZ-11977

PATIENT
  Age: 2 Year
  Sex: Female
  Weight: 12 kg

DRUGS (1)
  1. CEREZYME [Suspect]
     Indication: GAUCHER'S DISEASE
     Dosage: 120 U/KG Q2WKS IV
     Route: 042
     Dates: start: 20051215, end: 20070927

REACTIONS (4)
  - CHOKING [None]
  - LOWER RESPIRATORY TRACT INFECTION [None]
  - NECK DEFORMITY [None]
  - SUDDEN DEATH [None]
